FAERS Safety Report 24211614 (Version 6)
Quarter: 2025Q3

REPORT INFORMATION
  Report Type: Report from Study
  Country: US (occurrence: US)
  Receive Date: 20240814
  Receipt Date: 20250801
  Transmission Date: 20251020
  Serious: Yes (Hospitalization, Other)
  Sender: SUNOVION
  Company Number: US-SUMITOMO PHARMA SWITZERLAND GMBH-2024SPA000593

PATIENT

DRUGS (4)
  1. ORGOVYX [Suspect]
     Active Substance: RELUGOLIX
     Indication: Prostate cancer
     Route: 048
  2. ORGOVYX [Suspect]
     Active Substance: RELUGOLIX
     Dosage: 120 MG, QD
     Route: 048
     Dates: start: 20240708
  3. MELOXICAM [Suspect]
     Active Substance: MELOXICAM
     Indication: Radiation oedema
     Route: 065
  4. ABIRATERONE [Concomitant]
     Active Substance: ABIRATERONE
     Indication: Prostate cancer
     Dosage: 1000 MG, QD
     Route: 065
     Dates: start: 20240708

REACTIONS (36)
  - Intestinal obstruction [Recovered/Resolved]
  - Loss of consciousness [Unknown]
  - Atrial fibrillation [Unknown]
  - Mental impairment [Unknown]
  - Syncope [Unknown]
  - Myelodysplastic syndrome [Unknown]
  - Blood pressure systolic increased [Unknown]
  - Irritability [Unknown]
  - Dyspnoea exertional [Unknown]
  - Feeling abnormal [Unknown]
  - Lethargy [Unknown]
  - Airway peak pressure increased [Unknown]
  - Sleep disorder [Unknown]
  - Dizziness postural [Unknown]
  - Weight decreased [Unknown]
  - Brain fog [Unknown]
  - Platelet count decreased [Unknown]
  - Radiation oedema [Recovering/Resolving]
  - Micturition urgency [Recovering/Resolving]
  - Pain [Unknown]
  - Muscle atrophy [Unknown]
  - Hypersomnia [Unknown]
  - Blood potassium decreased [Unknown]
  - Bowel movement irregularity [Unknown]
  - Vomiting [Not Recovered/Not Resolved]
  - Abdominal distension [Recovered/Resolved]
  - Abdominal pain upper [Not Recovered/Not Resolved]
  - Abdominal discomfort [Unknown]
  - Dizziness [Unknown]
  - Nausea [Unknown]
  - Asthenia [Unknown]
  - Constipation [Unknown]
  - Fatigue [Unknown]
  - Hot flush [Unknown]
  - Diarrhoea [Recovered/Resolved]
  - Blood glucose increased [Unknown]
